FAERS Safety Report 4726046-1 (Version None)
Quarter: 2005Q3

REPORT INFORMATION
  Report Type: 
  Country: None (occurrence: None)
  Receive Date: 20050725
  Receipt Date: 20050719
  Transmission Date: 20060218
  Serious: Yes (Other)
  Sender: FDA-Public Use
  Company Number: NLWYE999525AUG04

PATIENT
  Sex: 0

DRUGS (3)
  1. RAPAMUNE [Suspect]
     Indication: PROPHYLAXIS AGAINST TRANSPLANT REJECTION
  2. MYCOPHENOLATE MOFETIL        (MYCOPHENOLATE MOFETIL) [Concomitant]
  3. IMMUNOSUPPRESSIVE AGENTS          (IMMUNOSUPPRESSIVE AGENTS) [Concomitant]

REACTIONS (5)
  - ANAEMIA [None]
  - HAEMOLYSIS [None]
  - LYMPHOCELE [None]
  - TUBERCULOSIS [None]
  - URINARY TRACT INFECTION [None]
